FAERS Safety Report 12379154 (Version 2)
Quarter: 2016Q3

REPORT INFORMATION
  Report Type: Spontaneous
  Country: DE (occurrence: DE)
  Receive Date: 20160517
  Receipt Date: 20160913
  Transmission Date: 20161109
  Serious: Yes (Other)
  Sender: FDA-Public Use
  Company Number: PHHY2016DE067161

PATIENT
  Sex: Male

DRUGS (1)
  1. MEKINIST [Suspect]
     Active Substance: TRAMETINIB DIMETHYL SULFOXIDE
     Indication: METASTATIC MALIGNANT MELANOMA
     Dosage: 2 MG, QD
     Route: 065
     Dates: start: 20151115

REACTIONS (3)
  - Gait disturbance [Unknown]
  - Posture abnormal [Unknown]
  - Drug intolerance [Unknown]

NARRATIVE: CASE EVENT DATE: 2015
